FAERS Safety Report 7748526 (Version 5)
Quarter: 2013Q4

REPORT INFORMATION
  Report Type: Spontaneous
  Country: US (occurrence: US)
  Receive Date: 20110105
  Receipt Date: 20131227
  Transmission Date: 20140711
  Serious: Yes (Hospitalization)
  Sender: FDA-Public Use
  Company Number: US-BAYER-2011-000649

PATIENT
  Age: 27 Year
  Sex: Female
  Weight: 88.44 kg

DRUGS (8)
  1. YASMIN [Suspect]
     Indication: PRODUCT USED FOR UNKNOWN INDICATION
     Dosage: UNK
     Dates: start: 2006, end: 2007
  2. YAZ [Suspect]
     Dosage: UNK
     Dates: start: 2006, end: 2007
  3. TRIAMTERENE [Concomitant]
     Dosage: UNK
     Dates: start: 20090820
  4. HYDROCHLOROTHIAZIDE [Concomitant]
     Indication: HYPERTENSION
     Dosage: 37.5/25 MG DAILY
     Dates: start: 20090820
  5. ZOCOR [Concomitant]
     Indication: HYPERLIPIDAEMIA
     Dosage: 20 MG, DAILY
     Dates: start: 20090820
  6. FLEXERIL [Concomitant]
     Indication: BACK PAIN
     Dosage: 10 MG, DAILY
     Dates: start: 20090820
  7. HYDROCODONE [Concomitant]
     Indication: PAIN
  8. SEPTRA DS [Concomitant]

REACTIONS (2)
  - Cholelithiasis [None]
  - Cholecystitis acute [None]
